FAERS Safety Report 10209552 (Version 1)
Quarter: 2014Q2

REPORT INFORMATION
  Report Type: Spontaneous
  Country: DK (occurrence: DK)
  Receive Date: 20140602
  Receipt Date: 20140602
  Transmission Date: 20141212
  Serious: Yes (Hospitalization)
  Sender: FDA-Public Use
  Company Number: DK-ROCHE-1410107

PATIENT
  Age: 71 Year
  Sex: Female

DRUGS (1)
  1. AVASTIN [Suspect]
     Indication: OVARIAN CANCER
     Dosage: STRENGTH : 25 MG/ML
     Route: 042
     Dates: start: 20140305, end: 20140308

REACTIONS (4)
  - Pulmonary embolism [Recovering/Resolving]
  - Malaise [Unknown]
  - Dyspnoea [Unknown]
  - Syncope [Recovered/Resolved]
